FAERS Safety Report 9674460 (Version 3)
Quarter: 2013Q4

REPORT INFORMATION
  Report Type: Spontaneous
  Country: JP (occurrence: JP)
  Receive Date: 20131107
  Receipt Date: 20131208
  Transmission Date: 20140711
  Serious: Yes (Death, Life-Threatening)
  Sender: FDA-Public Use
  Company Number: JP-ROCHE-1289287

PATIENT
  Age: 60 Year
  Sex: Female
  Weight: 66 kg

DRUGS (12)
  1. AVASTIN [Suspect]
     Indication: RECTAL CANCER METASTATIC
     Dosage: 500 MG
     Route: 041
     Dates: start: 20130924, end: 20130924
  2. XELODA [Suspect]
     Indication: RECTAL CANCER METASTATIC
     Dosage: 2 WEEKS ADMINISTRATION FOLLOWED BY 1 WEEK REST
     Route: 048
     Dates: start: 20130924, end: 20131001
  3. ELPLAT [Concomitant]
     Indication: RECTAL CANCER METASTATIC
     Route: 041
     Dates: start: 20130924, end: 20130924
  4. NASEA [Concomitant]
     Route: 048
     Dates: start: 20130924, end: 20130924
  5. DECADRON [Concomitant]
     Route: 048
     Dates: start: 20130924, end: 20130924
  6. DECADRON [Concomitant]
     Route: 048
     Dates: start: 20130924
  7. OXYCONTIN [Concomitant]
     Indication: PAIN
     Route: 048
     Dates: start: 20130918, end: 20131010
  8. LOXOPROFEN [Concomitant]
     Indication: PAIN
     Route: 048
     Dates: start: 20130909, end: 20131010
  9. NEXIUM [Concomitant]
     Indication: PROPHYLAXIS AGAINST GASTROINTESTINAL ULCER
     Route: 048
     Dates: start: 20130909, end: 20131010
  10. SENNOSIDE [Concomitant]
     Indication: CONSTIPATION
     Route: 048
     Dates: start: 20130908, end: 20131010
  11. MAGNESIUM OXIDE [Concomitant]
     Indication: CONSTIPATION
     Route: 048
     Dates: start: 20130904, end: 20131010
  12. OXINORM (JAPAN) [Concomitant]
     Dosage: DOSAGE IS UNCERTAIN.
     Route: 048

REACTIONS (2)
  - Peritonitis [Fatal]
  - Gastrointestinal perforation [Not Recovered/Not Resolved]
